FAERS Safety Report 4408673-4 (Version None)
Quarter: 2004Q3

REPORT INFORMATION
  Report Type: 
  Country: None (occurrence: None)
  Receive Date: 20040723
  Receipt Date: 20040712
  Transmission Date: 20050211
  Serious: Yes (Life-Threatening)
  Sender: FDA-Public Use
  Company Number: 2003116303

PATIENT
  Age: 30 Year
  Sex: Male
  Weight: 73 kg

DRUGS (4)
  1. ZIPRASIDONE [Suspect]
     Indication: SCHIZOPHRENIA
     Dosage: SEE IMAGE
     Route: 048
     Dates: start: 20031027, end: 20031027
  2. ZIPRASIDONE [Suspect]
     Indication: SCHIZOPHRENIA
     Dosage: SEE IMAGE
     Route: 048
     Dates: start: 20031028, end: 20031102
  3. DELORAZEPAM 9DELORAZEPAM) [Concomitant]
  4. LORMETAZEPAM (LORMETAZEPAM) [Concomitant]

REACTIONS (18)
  - BRADYCARDIA [None]
  - CARDIAC DISORDER [None]
  - CARDIAC FAILURE [None]
  - DEHYDRATION [None]
  - DEPRESSED LEVEL OF CONSCIOUSNESS [None]
  - DRUG INEFFECTIVE [None]
  - DRUG INTERACTION [None]
  - EATING DISORDER [None]
  - HALLUCINATION, AUDITORY [None]
  - HALLUCINATION, OLFACTORY [None]
  - HETEROPHORIA [None]
  - HYPOTENSION [None]
  - NAUSEA [None]
  - PALLOR [None]
  - SCHIZOPHRENIA [None]
  - SOMNOLENCE [None]
  - TACHYCARDIA [None]
  - VOMITING [None]
